FAERS Safety Report 7142761-7 (Version None)
Quarter: 2010Q4

REPORT INFORMATION
  Report Type: 
  Country: None (occurrence: None)
  Receive Date: 20101207
  Receipt Date: 20101124
  Transmission Date: 20110411
  Serious: Yes (Other)
  Sender: FDA-Public Use
  Company Number: FI-GENENTECH-310201

PATIENT
  Age: 61 Year
  Sex: Female

DRUGS (2)
  1. MABTHERA [Suspect]
     Indication: LUPUS VASCULITIS
     Dosage: 1000 MG, X2
     Route: 042
     Dates: start: 20091101, end: 20100101
  2. CYCLOPHOSPHAMIDE [Concomitant]
     Indication: PRODUCT USED FOR UNKNOWN INDICATION
     Dosage: UNK
     Dates: start: 20090101

REACTIONS (1)
  - PROGRESSIVE MULTIFOCAL LEUKOENCEPHALOPATHY [None]
